FAERS Safety Report 13522926 (Version 7)
Quarter: 2017Q4

REPORT INFORMATION
  Report Type: Spontaneous
  Country: CA (occurrence: CA)
  Receive Date: 20170508
  Receipt Date: 20171117
  Transmission Date: 20180320
  Serious: Yes (Other)
  Sender: FDA-Public Use
  Company Number: CA-CELLTRION HEALTHCARE HUNGARY KFT-2016CA013342

PATIENT

DRUGS (10)
  1. IRON [Concomitant]
     Active Substance: IRON
     Dosage: UNK, DAILY
     Route: 065
  2. INFLECTRA [Suspect]
     Active Substance: INFLIXIMAB-DYYB
     Dosage: 300 MG, CYCLIC (EVERY 2, 6 WEEKS, THEN EVERY 8 MONTHS FOR 12 MONTHS)
     Route: 042
     Dates: start: 20161108
  3. SYNTHROID [Concomitant]
     Active Substance: LEVOTHYROXINE SODIUM
     Dosage: 0.45 MG, DAILY
     Route: 065
  4. INFLECTRA [Suspect]
     Active Substance: INFLIXIMAB-DYYB
     Dosage: 300 MG, EVERY 0, 2, 6 WEEKS, THEN EVERY 8 WEEKS
     Route: 042
     Dates: start: 20161108
  5. VITAMIN D                          /00107901/ [Concomitant]
     Active Substance: ERGOCALCIFEROL
     Dosage: UNK, DAILY
     Route: 065
  6. FLAGYL [Concomitant]
     Active Substance: METRONIDAZOLE\METRONIDAZOLE HYDROCHLORIDE
     Dosage: UNK
  7. INFLECTRA [Suspect]
     Active Substance: INFLIXIMAB-DYYB
     Indication: CROHN^S DISEASE
     Dosage: 300 MG, CYCLIC (EVERY 2,6 WEEKS, THEN EVERY 8 MONTHS FOR 12 MONTHS)
     Route: 042
     Dates: start: 20161108
  8. ADVIL [Concomitant]
     Active Substance: IBUPROFEN
     Indication: DYSMENORRHOEA
     Dosage: 800 MG, AS NEEDED
     Route: 048
     Dates: start: 20160601
  9. INFLECTRA [Suspect]
     Active Substance: INFLIXIMAB-DYYB
     Dosage: 300 MG, CYCLIC (EVERY 2, 6 WEEKS, THEN EVERY 8 MONTHS FOR 12 MONTHS)
     Route: 042
     Dates: start: 20161108
  10. VITAMIN B [Concomitant]
     Active Substance: VITAMIN B
     Dosage: UNK
     Route: 065

REACTIONS (25)
  - Gastrointestinal pain [Unknown]
  - Dyspepsia [Unknown]
  - Influenza like illness [Recovered/Resolved]
  - Diarrhoea [Not Recovered/Not Resolved]
  - Oropharyngeal pain [Recovered/Resolved]
  - Lethargy [Unknown]
  - Pyrexia [Recovered/Resolved]
  - Ear pain [Not Recovered/Not Resolved]
  - Viral infection [Recovering/Resolving]
  - Bronchitis [Unknown]
  - Dysphagia [Recovering/Resolving]
  - Urinary tract infection [Recovered/Resolved]
  - Feeling hot [Recovering/Resolving]
  - Dyspnoea [Unknown]
  - Aphonia [Recovering/Resolving]
  - Gastroenteritis viral [Unknown]
  - Fatigue [Not Recovered/Not Resolved]
  - Lymphadenopathy [Unknown]
  - Lung infection [Not Recovered/Not Resolved]
  - Respiratory tract congestion [Recovering/Resolving]
  - Defaecation urgency [Not Recovered/Not Resolved]
  - Headache [Not Recovered/Not Resolved]
  - Wheezing [Recovered/Resolved]
  - Hyperhidrosis [Unknown]
  - Chest pain [Unknown]

NARRATIVE: CASE EVENT DATE: 20160811
